FAERS Safety Report 24146812 (Version 1)
Quarter: 2024Q3

REPORT INFORMATION
  Report Type: Spontaneous
  Country: US (occurrence: None)
  Receive Date: 20240726
  Receipt Date: 20240726
  Transmission Date: 20241017
  Serious: Yes (Death)
  Sender: Public
  Company Number: None

PATIENT
  Age: 80 Year
  Sex: Male

DRUGS (1)
  1. OFEV [Suspect]
     Active Substance: NINTEDANIB
     Indication: Pulmonary fibrosis
     Dosage: FREQUENCY : TWICE A DAY;?
     Route: 048
     Dates: start: 20221012, end: 20240723

REACTIONS (5)
  - Pneumonia [None]
  - Dysphonia [None]
  - Bradycardia [None]
  - Mitral valve incompetence [None]
  - Coronary artery bypass [None]

NARRATIVE: CASE EVENT DATE: 20240723
